FAERS Safety Report 24271453 (Version 2)
Quarter: 2024Q3

REPORT INFORMATION
  Report Type: Spontaneous
  Country: TR (occurrence: TR)
  Receive Date: 20240901
  Receipt Date: 20240907
  Transmission Date: 20241016
  Serious: Yes (Death, Hospitalization)
  Sender: JOHNSON AND JOHNSON
  Company Number: TR-JNJFOC-20240863501

PATIENT
  Age: 69 Year
  Sex: Female

DRUGS (10)
  1. AMIVANTAMAB [Suspect]
     Active Substance: AMIVANTAMAB
     Indication: Lung adenocarcinoma
     Dosage: 50MG/H
     Route: 042
  2. PHENIRAMINE [Concomitant]
     Active Substance: PHENIRAMINE
     Route: 050
  3. DEXAMET [DEXAMETHASONE] [Concomitant]
     Route: 050
  4. GRANITRON [Concomitant]
     Route: 050
  5. ISOTONIC [Concomitant]
     Route: 050
  6. ALBUTEROL SULFATE\IPRATROPIUM BROMIDE [Concomitant]
     Active Substance: ALBUTEROL SULFATE\IPRATROPIUM BROMIDE
     Indication: Hypertension
     Route: 050
  7. CORTAIR [Concomitant]
     Indication: Hypertension
     Route: 050
  8. CARVEDILOL [Concomitant]
     Active Substance: CARVEDILOL
     Indication: Hypertension
     Route: 050
  9. DECORT [Concomitant]
  10. ACETAMINOPHEN [Concomitant]
     Active Substance: ACETAMINOPHEN

REACTIONS (2)
  - Anaphylactic reaction [Fatal]
  - Atrial fibrillation [Unknown]

NARRATIVE: CASE EVENT DATE: 20240812
